FAERS Safety Report 12069715 (Version 2)
Quarter: 2016Q1

REPORT INFORMATION
  Report Type: Spontaneous
  Country: JP (occurrence: JP)
  Receive Date: 20160211
  Receipt Date: 20160321
  Transmission Date: 20160526
  Serious: Yes (Other)
  Sender: FDA-Public Use
  Company Number: JP-ROCHE-1675658

PATIENT
  Age: 85 Year
  Sex: Female
  Weight: 39 kg

DRUGS (7)
  1. COPEGUS [Suspect]
     Active Substance: RIBAVIRIN
     Indication: HEPATITIS C
     Dosage: DOSAGE IS UNCERTAIN.
     Route: 048
  2. SOVALDI [Suspect]
     Active Substance: SOFOSBUVIR
     Indication: HEPATITIS C
     Dosage: FREQUENCY IS UNCERTAIN.
     Route: 048
     Dates: start: 20151105, end: 20151112
  3. AMARYL [Concomitant]
     Active Substance: GLIMEPIRIDE
     Dosage: DOSAGE IS UNCERTAIN.
     Route: 065
  4. SOVALDI [Suspect]
     Active Substance: SOFOSBUVIR
     Route: 048
  5. JANUVIA [Concomitant]
     Active Substance: SITAGLIPTIN PHOSPHATE
     Dosage: DOSAGE IS UNCERTAIN.
     Route: 065
  6. MICAMLO [Concomitant]
     Active Substance: AMLODIPINE BESYLATE\TELMISARTAN
     Dosage: DOSAGE IS UNCERTAIN.
     Route: 048
     Dates: start: 20140501
  7. COPEGUS [Suspect]
     Active Substance: RIBAVIRIN
     Indication: HEPATITIS C
     Dosage: FREQUENCY IS UNCERTAIN.
     Route: 048
     Dates: start: 20151105, end: 20151112

REACTIONS (3)
  - Joint swelling [Unknown]
  - Rash [Unknown]
  - Vertigo [Recovered/Resolved]

NARRATIVE: CASE EVENT DATE: 20151112
